FAERS Safety Report 13820312 (Version 1)
Quarter: 2017Q3

REPORT INFORMATION
  Report Type: Spontaneous
  Country: GB (occurrence: GB)
  Receive Date: 20170801
  Receipt Date: 20170801
  Transmission Date: 20171127
  Serious: Yes (Other)
  Sender: FDA-Public Use
  Company Number: GB-PFIZER INC-2017323861

PATIENT
  Age: 21 Year
  Sex: Female
  Weight: 53.6 kg

DRUGS (1)
  1. SERTRALINE HCL [Suspect]
     Active Substance: SERTRALINE HYDROCHLORIDE
     Indication: ANXIETY
     Dosage: 50 MG, 1X/DAY
     Route: 048
     Dates: start: 20170224, end: 20170703

REACTIONS (6)
  - Facial pain [Unknown]
  - Arthralgia [Unknown]
  - Muscle rigidity [Unknown]
  - Condition aggravated [Unknown]
  - Bruxism [Unknown]
  - Joint dislocation [Recovered/Resolved]

NARRATIVE: CASE EVENT DATE: 20170324
